FAERS Safety Report 15267349 (Version 3)
Quarter: 2019Q2

REPORT INFORMATION
  Report Type: Report from Study
  Country: US (occurrence: US)
  Receive Date: 20180811
  Receipt Date: 20190528
  Transmission Date: 20190711
  Serious: No
  Sender: FDA-Public Use
  Company Number: PHEH2018US032156

PATIENT
  Sex: Female

DRUGS (2)
  1. SANDOSTATIN LAR DEPOT [Suspect]
     Active Substance: OCTREOTIDE ACETATE
     Dosage: 20 MG, QMO
     Route: 030
  2. SANDOSTATIN LAR DEPOT [Suspect]
     Active Substance: OCTREOTIDE ACETATE
     Indication: CARCINOID SYNDROME
     Dosage: 10 MG, QMO
     Route: 030

REACTIONS (7)
  - Blood pressure abnormal [Unknown]
  - Body temperature abnormal [Unknown]
  - Nervousness [Unknown]
  - Stress [Unknown]
  - Flushing [Unknown]
  - Heart rate increased [Unknown]
  - Skin irritation [Unknown]
